FAERS Safety Report 9494058 (Version 1)
Quarter: 2013Q3

REPORT INFORMATION
  Report Type: Spontaneous
  Country: US (occurrence: None)
  Receive Date: 20130829
  Receipt Date: 20130829
  Transmission Date: 20140515
  Serious: Yes (Other)
  Sender: FDA-Public Use
  Company Number: None

PATIENT
  Age: 59 Year
  Sex: Female
  Weight: 56.7 kg

DRUGS (1)
  1. SIMVASTATIN [Suspect]
     Dosage: 1/DAY AT NIGHT  ONCE DAILY  TAKEN BY MOUTH
     Route: 048

REACTIONS (2)
  - Hepatic enzyme abnormal [None]
  - Hepatic steatosis [None]
